FAERS Safety Report 17307776 (Version 1)
Quarter: 2020Q1

REPORT INFORMATION
  Report Type: Report from Study
  Country: HR (occurrence: HR)
  Receive Date: 20200123
  Receipt Date: 20200123
  Transmission Date: 20200409
  Serious: Yes (Hospitalization, Other)
  Sender: FDA-Public Use
  Company Number: HR-ROCHE-2519676

PATIENT

DRUGS (3)
  1. CHLORAMBUCIL [Concomitant]
     Active Substance: CHLORAMBUCIL
     Indication: CHRONIC LYMPHOCYTIC LEUKAEMIA
  2. OBINUTUZUMAB. [Suspect]
     Active Substance: OBINUTUZUMAB
     Indication: CHRONIC LYMPHOCYTIC LEUKAEMIA
     Dosage: 25 MG/HOUR RATE OVER 4 H
     Route: 042
  3. METHYLPREDNISOLONE. [Concomitant]
     Active Substance: METHYLPREDNISOLONE
     Indication: PREMEDICATION
     Dosage: 1-1.5 MG/KG FOR }/-7
     Route: 065

REACTIONS (7)
  - Infusion related reaction [Unknown]
  - Febrile neutropenia [Unknown]
  - Neutropenia [Unknown]
  - Herpes zoster [Unknown]
  - Cholangitis [Unknown]
  - Pneumonia [Unknown]
  - Urinary tract infection [Unknown]
